FAERS Safety Report 6553795-5 (Version None)
Quarter: 2010Q1

REPORT INFORMATION
  Report Type: 
  Country: None (occurrence: None)
  Receive Date: 20100127
  Receipt Date: 20100119
  Transmission Date: 20100710
  Serious: Yes (Hospitalization)
  Sender: FDA-Public Use
  Company Number: ES-ASTRAZENECA-2010SE02943

PATIENT
  Age: 70 Year
  Sex: Male

DRUGS (2)
  1. OMEPRAZOLE [Suspect]
     Dosage: RANGING FROM 20 TO 40 MG/DAY
     Dates: start: 19980101, end: 20020101
  2. OMEPRAZOLE [Suspect]
     Dates: end: 20090201

REACTIONS (4)
  - HYPOCALCAEMIA [None]
  - HYPOMAGNESAEMIA [None]
  - LATENT TETANY [None]
  - SUPRAVENTRICULAR TACHYCARDIA [None]
